FAERS Safety Report 6452677-7 (Version None)
Quarter: 2009Q4

REPORT INFORMATION
  Report Type: 
  Country: None (occurrence: None)
  Receive Date: 20091124
  Receipt Date: 20091111
  Transmission Date: 20100525
  Serious: Yes (Other)
  Sender: FDA-Public Use
  Company Number: US-ELI_LILLY_AND_COMPANY-US200911003078

PATIENT
  Sex: Female

DRUGS (3)
  1. HUMALOG [Suspect]
     Indication: DIABETES MELLITUS
     Dosage: 2 U, EACH MORNING
     Dates: start: 19990101
  2. HUMALOG [Suspect]
     Dosage: 4 U, EACH MORNING
     Dates: start: 19990101
  3. LANTUS [Concomitant]
     Dosage: 10 U, EACH EVENING
     Dates: start: 20010101

REACTIONS (3)
  - EXPIRED DRUG ADMINISTERED [None]
  - MEDICATION ERROR [None]
  - OBESITY SURGERY [None]
